FAERS Safety Report 23818836 (Version 1)
Quarter: 2024Q2

REPORT INFORMATION
  Report Type: Spontaneous
  Country: CN (occurrence: CN)
  Receive Date: 20240506
  Receipt Date: 20240506
  Transmission Date: 20240716
  Serious: Yes (Other)
  Sender: FDA-Public Use
  Company Number: CN-Jiangsu Hengrui Medicine Co., Ltd.-2156552

PATIENT
  Age: 38 Year
  Sex: Female

DRUGS (4)
  1. OXALIPLATIN [Suspect]
     Active Substance: OXALIPLATIN
     Indication: Gastric cancer
     Route: 041
     Dates: start: 20240328, end: 20240328
  2. CAPECITABINE [Suspect]
     Active Substance: CAPECITABINE
     Route: 048
     Dates: start: 20240328, end: 20240328
  3. DEXTROSE [Concomitant]
     Active Substance: DEXTROSE\DEXTROSE MONOHYDRATE
     Route: 041
     Dates: start: 20240328, end: 20240328
  4. SINTILIMAB [Suspect]
     Active Substance: SINTILIMAB
     Route: 041
     Dates: start: 20240328, end: 20240328

REACTIONS (1)
  - Limb discomfort [Recovering/Resolving]

NARRATIVE: CASE EVENT DATE: 20240329
